FAERS Safety Report 8879787 (Version 3)
Quarter: 2013Q2

REPORT INFORMATION
  Report Type: Spontaneous
  Country: US (occurrence: US)
  Receive Date: 20121031
  Receipt Date: 20130508
  Transmission Date: 20140414
  Serious: Yes (Life-Threatening)
  Sender: FDA-Public Use
  Company Number: US-009507513-1210USA012589

PATIENT
  Age: 23 Year
  Sex: Female
  Weight: 51.7 kg

DRUGS (1)
  1. IMPLANON [Suspect]
     Indication: CONTRACEPTION
     Dosage: 1 ROD, UNK
     Route: 059
     Dates: start: 20100930, end: 20121025

REACTIONS (3)
  - Communication disorder [Unknown]
  - Hemiplegia [Unknown]
  - Headache [Unknown]
